FAERS Safety Report 11262600 (Version 2)
Quarter: 2021Q1

REPORT INFORMATION
  Report Type: Spontaneous
  Country: US (occurrence: US)
  Receive Date: 20150710
  Receipt Date: 20210209
  Transmission Date: 20210419
  Serious: Yes (Disabling, Other)
  Sender: FDA-Public Use
  Company Number: US-PURDUE-USA-2015-0123786

PATIENT
  Age: 55 Year
  Sex: Female

DRUGS (2)
  1. DILAUDID [Suspect]
     Active Substance: HYDROMORPHONE HYDROCHLORIDE
     Indication: PRODUCT USED FOR UNKNOWN INDICATION
     Route: 048
  2. BUTRANS [Suspect]
     Active Substance: BUPRENORPHINE
     Indication: PAIN
     Dosage: 20 MCG/HR, WEEKLY
     Route: 062
     Dates: start: 201505

REACTIONS (6)
  - Drug ineffective [Unknown]
  - Product adhesion issue [Unknown]
  - Overdose [Unknown]
  - Seizure [Unknown]
  - Unevaluable event [Unknown]
  - Drug dependence [Unknown]

NARRATIVE: CASE EVENT DATE: 20150522
